FAERS Safety Report 9352770 (Version 1)
Quarter: 2013Q2

REPORT INFORMATION
  Report Type: Spontaneous
  Country: US (occurrence: None)
  Receive Date: 20130614
  Receipt Date: 20130614
  Transmission Date: 20140414
  Serious: Yes (Life-Threatening)
  Sender: FDA-Public Use
  Company Number: None

PATIENT
  Age: 49 Year
  Sex: Female
  Weight: 56.7 kg

DRUGS (2)
  1. CLIMARA [Suspect]
     Indication: HOT FLUSH
     Dosage: CUTANEOUS.
     Route: 061
     Dates: start: 20130607, end: 20130607
  2. CLIMARA [Suspect]
     Indication: NIGHT SWEATS
     Dosage: CUTANEOUS.
     Route: 061
     Dates: start: 20130607, end: 20130607

REACTIONS (7)
  - Asthma [None]
  - Dyspnoea [None]
  - Tachycardia [None]
  - Fatigue [None]
  - Abasia [None]
  - Nausea [None]
  - Asthenia [None]
